FAERS Safety Report 7941837-1 (Version None)
Quarter: 2011Q4

REPORT INFORMATION
  Report Type: 
  Country: None (occurrence: None)
  Receive Date: 20111128
  Receipt Date: 20111118
  Transmission Date: 20120403
  Serious: Yes (Hospitalization, Other)
  Sender: FDA-Public Use
  Company Number: CL-GENZYME-THYM-1002824

PATIENT
  Age: 9 Year
  Sex: Male

DRUGS (3)
  1. FLUDARABINE PHOSPHATE [Concomitant]
     Indication: BONE MARROW CONDITIONING REGIMEN
     Dosage: 32 MG, QD
  2. THYMOGLOBULIN [Suspect]
     Indication: BONE MARROW CONDITIONING REGIMEN
     Dosage: 116 MG, QD
     Route: 042
     Dates: start: 20110917, end: 20110917
  3. CYCLOPHOSPHAMIDE [Concomitant]
     Indication: BONE MARROW CONDITIONING REGIMEN
     Dosage: 541 MG, QD

REACTIONS (8)
  - PALLOR [None]
  - CHILLS [None]
  - RESPIRATORY DISTRESS [None]
  - DYSPNOEA [None]
  - ANXIETY [None]
  - SUFFOCATION FEELING [None]
  - OXYGEN SATURATION DECREASED [None]
  - SLEEP APNOEA SYNDROME [None]
